FAERS Safety Report 13225504 (Version 1)
Quarter: 2017Q1

REPORT INFORMATION
  Report Type: Spontaneous
  Country: US (occurrence: US)
  Receive Date: 20170211
  Receipt Date: 20170211
  Transmission Date: 20170428
  Serious: No
  Sender: FDA-Public Use
  Company Number: None

PATIENT
  Age: 66 Year
  Sex: Female

DRUGS (1)
  1. HUMIRA [Suspect]
     Active Substance: ADALIMUMAB
     Indication: PSORIASIS
     Dosage: DOSE AMOUNT - STANDARD TITRATION?FREQUENCY - STANDARD TITRATION
     Route: 058
     Dates: start: 20170106, end: 20170128

REACTIONS (2)
  - Hypersensitivity [None]
  - Rash generalised [None]

NARRATIVE: CASE EVENT DATE: 20170128
